FAERS Safety Report 11622743 (Version 1)
Quarter: 2015Q4

REPORT INFORMATION
  Report Type: Spontaneous
  Country: US (occurrence: US)
  Receive Date: 20151013
  Receipt Date: 20151013
  Transmission Date: 20160304
  Serious: No
  Sender: FDA-Public Use
  Company Number: US-JNJFOC-20150106396

PATIENT
  Age: 80 Year
  Sex: Female
  Weight: 73.94 kg

DRUGS (1)
  1. TYLENOL EXTRA STRENGTH [Suspect]
     Active Substance: ACETAMINOPHEN
     Indication: PAIN
     Dosage: UP TO 3X A DAY
     Route: 048

REACTIONS (3)
  - Drug ineffective [Unknown]
  - Foreign body [Recovered/Resolved]
  - Inappropriate schedule of drug administration [Unknown]
